FAERS Safety Report 19067383 (Version 2)
Quarter: 2021Q2

REPORT INFORMATION
  Report Type: Spontaneous
  Country: US (occurrence: US)
  Receive Date: 20210329
  Receipt Date: 20210406
  Transmission Date: 20210717
  Serious: Yes (Other)
  Sender: FDA-Public Use
  Company Number: US-BLUEPRINT MEDICINES CORPORATION-SP-US-2021-000363

PATIENT
  Sex: Female

DRUGS (3)
  1. GAVRETO [Suspect]
     Active Substance: PRALSETINIB
     Indication: NEOPLASM MALIGNANT
     Route: 048
  2. GAVRETO [Suspect]
     Active Substance: PRALSETINIB
     Route: 048
  3. VITAMIN D [Concomitant]
     Active Substance: VITAMIN D NOS
     Indication: PRODUCT USED FOR UNKNOWN INDICATION
     Route: 065

REACTIONS (5)
  - Transfusion [Unknown]
  - Off label use [Unknown]
  - Neuropathy peripheral [Unknown]
  - Stomatitis [Recovered/Resolved]
  - Blood count abnormal [Unknown]
